FAERS Safety Report 4522959-4 (Version None)
Quarter: 2004Q4

REPORT INFORMATION
  Report Type: 
  Country: None (occurrence: None)
  Receive Date: 20041101
  Receipt Date: 20030908
  Transmission Date: 20050328
  Serious: Yes (Hospitalization, Other)
  Sender: FDA-Public Use
  Company Number: HQWYE658112SEP03

PATIENT
  Age: 60 Year
  Sex: Female
  Weight: 81.72 kg

DRUGS (7)
  1. PREMARIN [Suspect]
     Dosage: 1.25 MG DAILY, ORAL
     Route: 048
     Dates: start: 19800101, end: 20021001
  2. ALLEGRA [Concomitant]
  3. CLARADIN (ACETYLSALICYLIC ACID) [Concomitant]
  4. SINGULAIR [Concomitant]
  5. HYZAAR [Concomitant]
  6. PROPRANDOLOL (PROPANOLOL) [Concomitant]
  7. ARIMIDEX ^BERAGENA^ (ANASTROZOLE) [Concomitant]

REACTIONS (1)
  - BREAST CANCER FEMALE [None]
